FAERS Safety Report 6447681-9 (Version None)
Quarter: 2009Q4

REPORT INFORMATION
  Report Type: 
  Country: None (occurrence: None)
  Receive Date: 20091120
  Receipt Date: 20091112
  Transmission Date: 20100525
  Serious: Yes (Hospitalization)
  Sender: FDA-Public Use
  Company Number: US-BIOGENIDEC-2009BI028110

PATIENT
  Age: 52 Year
  Sex: Female
  Weight: 62 kg

DRUGS (9)
  1. TYSABRI [Suspect]
     Indication: MULTIPLE SCLEROSIS
     Route: 042
     Dates: start: 20080827
  2. CYMBALTA [Concomitant]
     Indication: DEPRESSION
  3. CYMBALTA [Concomitant]
     Indication: ARTHRALGIA
  4. VICODIN [Concomitant]
     Indication: ARTHRALGIA
  5. ZOLPIDEM [Concomitant]
     Indication: INSOMNIA
  6. SEROQUEL [Concomitant]
  7. LAMOTRIGINE [Concomitant]
  8. BACLOFEN [Concomitant]
     Indication: ANXIETY
  9. PAIN PILL (NOS) [Concomitant]
     Indication: BACK PAIN

REACTIONS (8)
  - ABDOMINAL DISCOMFORT [None]
  - ASTHENIA [None]
  - BACK PAIN [None]
  - DEPRESSION SUICIDAL [None]
  - EMOTIONAL DISTRESS [None]
  - FATIGUE [None]
  - MEMORY IMPAIRMENT [None]
  - MULTIPLE SCLEROSIS [None]
